FAERS Safety Report 20602099 (Version 3)
Quarter: 2022Q2

REPORT INFORMATION
  Report Type: Report from Study
  Country: IT (occurrence: IT)
  Receive Date: 20220316
  Receipt Date: 20220511
  Transmission Date: 20220720
  Serious: Yes (Other)
  Sender: FDA-Public Use
  Company Number: IT-NOVARTISPH-NVSC2022IT050678

PATIENT
  Age: 43 Year
  Sex: Male
  Weight: 108.9 kg

DRUGS (4)
  1. TAFINLAR [Suspect]
     Active Substance: DABRAFENIB MESYLATE
     Indication: BRAF gene mutation
     Dosage: 150 MG, BID
     Route: 048
     Dates: start: 20210909, end: 20211115
  2. TAFINLAR [Suspect]
     Active Substance: DABRAFENIB MESYLATE
     Indication: Ameloblastoma
     Dosage: 150 MG, BID
     Route: 065
     Dates: start: 20211123
  3. TRAMETINIB [Suspect]
     Active Substance: TRAMETINIB
     Indication: BRAF gene mutation
     Dosage: 2 MG, QD
     Route: 065
     Dates: start: 20210909, end: 20211115
  4. TRAMETINIB [Suspect]
     Active Substance: TRAMETINIB
     Indication: Ameloblastoma
     Dosage: 2 MG, QD
     Route: 065
     Dates: start: 20211123

REACTIONS (2)
  - Hyperpyrexia [Unknown]
  - Pyrexia [Recovered/Resolved]

NARRATIVE: CASE EVENT DATE: 20211115
